FAERS Safety Report 5445032-X (Version None)
Quarter: 2007Q3

REPORT INFORMATION
  Report Type: 
  Country: None (occurrence: None)
  Receive Date: 20070906
  Receipt Date: 20070828
  Transmission Date: 20080115
  Serious: Yes (Hospitalization, Other)
  Sender: FDA-Public Use
  Company Number: US-ELI_LILLY_AND_COMPANY-US200708003589

PATIENT
  Age: 52 Year
  Sex: Male

DRUGS (8)
  1. CYMBALTA [Suspect]
     Indication: PAIN
     Dosage: 60 MG, UNK
     Dates: start: 20070704
  2. ATENOLOL [Concomitant]
  3. COUMADIN [Concomitant]
  4. GLIPIZIDE [Concomitant]
  5. MS CONTIN [Concomitant]
  6. MSIR [Concomitant]
  7. TEMAZEPAM [Concomitant]
  8. TRAZODONE HCL [Concomitant]

REACTIONS (8)
  - BLOOD PRESSURE DECREASED [None]
  - DIZZINESS [None]
  - DRUG INEFFECTIVE [None]
  - ELECTROCARDIOGRAM QT PROLONGED [None]
  - HEART RATE ABNORMAL [None]
  - HOSPITALISATION [None]
  - INFECTION [None]
  - JOINT SWELLING [None]
